FAERS Safety Report 7914463-8 (Version None)
Quarter: 2011Q4

REPORT INFORMATION
  Report Type: 
  Country: None (occurrence: None)
  Receive Date: 20111115
  Receipt Date: 20111109
  Transmission Date: 20120403
  Serious: Yes (Death, Other)
  Sender: FDA-Public Use
  Company Number: IT-CELGENEUS-083-21880-11081493

PATIENT

DRUGS (2)
  1. REVLIMID [Suspect]
     Dosage: 10 MILLIGRAM
     Route: 048
  2. CYTARABINE [Suspect]
     Dosage: 40 MILLIGRAM
     Route: 058

REACTIONS (2)
  - ACUTE MYELOID LEUKAEMIA [None]
  - NO THERAPEUTIC RESPONSE [None]
